FAERS Safety Report 6395453-6 (Version None)
Quarter: 2009Q4

REPORT INFORMATION
  Report Type: 
  Country: None (occurrence: None)
  Receive Date: 20091009
  Receipt Date: 20091005
  Transmission Date: 20100525
  Serious: Yes (Disabling, Other)
  Sender: FDA-Public Use
  Company Number: GB-ABBOTT-09P-167-0578982-00

PATIENT
  Sex: Female
  Weight: 65 kg

DRUGS (5)
  1. HUMIRA [Suspect]
     Indication: RHEUMATOID ARTHRITIS
     Route: 058
     Dates: start: 20070313, end: 20090602
  2. METHOTREXATE [Concomitant]
     Indication: RHEUMATOID ARTHRITIS
     Route: 048
     Dates: start: 20010101
  3. FOLIC ACID [Concomitant]
     Indication: DRUG USE FOR UNKNOWN INDICATION
     Route: 048
  4. LODINE [Concomitant]
     Indication: RHEUMATOID ARTHRITIS
     Dates: start: 20010101
  5. LODINE [Concomitant]
     Indication: RHEUMATOID ARTHRITIS

REACTIONS (2)
  - DEMYELINATION [None]
  - SENSORY DISTURBANCE [None]
